FAERS Safety Report 7162888-3 (Version None)
Quarter: 2010Q4

REPORT INFORMATION
  Report Type: 
  Country: None (occurrence: None)
  Receive Date: 20101215
  Receipt Date: 20101208
  Transmission Date: 20110411
  Serious: Yes (Hospitalization)
  Sender: FDA-Public Use
  Company Number: FR-SANOFI-AVENTIS-2010SA074585

PATIENT
  Sex: Male

DRUGS (8)
  1. CALCIPARINE [Suspect]
     Indication: PULMONARY EMBOLISM
     Route: 058
     Dates: start: 20101030, end: 20101101
  2. XATRAL [Suspect]
     Route: 065
     Dates: start: 20101028
  3. TELEBRIX [Suspect]
     Route: 065
     Dates: start: 20101029, end: 20101029
  4. UNFRACTIONATED HEPARIN [Concomitant]
     Indication: PULMONARY EMBOLISM
     Route: 065
     Dates: start: 20101029, end: 20101029
  5. PREVISCAN [Concomitant]
     Route: 065
     Dates: start: 20100501
  6. ESOMEPRAZOLE [Concomitant]
     Route: 065
  7. ATARAX [Concomitant]
     Route: 065
  8. PERINDOPRIL [Concomitant]
     Route: 065

REACTIONS (2)
  - MACULE [None]
  - RASH [None]
